FAERS Safety Report 8867823 (Version 1)
Quarter: 2012Q4

REPORT INFORMATION
  Report Type: 
  Country: US (occurrence: US)
  Receive Date: 20121026
  Receipt Date: 20121026
  Transmission Date: 20130627
  Serious: No
  Sender: FDA-Public Use
  Company Number: US-AMGEN-USASP2012041329

PATIENT
  Sex: Male
  Weight: 104.31 kg

DRUGS (3)
  1. ENBREL [Suspect]
     Indication: PRODUCT USED FOR UNKNOWN INDICATION
     Dosage: 50 mg, qwk
     Route: 058
  2. VICTOZA [Concomitant]
     Dosage: 18 mg/3ml, UNK
  3. PLAVIX [Concomitant]
     Dosage: 75 mg, UNK

REACTIONS (1)
  - Joint swelling [Unknown]
